FAERS Safety Report 23634395 (Version 1)
Quarter: 2024Q1

REPORT INFORMATION
  Report Type: Spontaneous
  Country: US (occurrence: US)
  Receive Date: 20240314
  Receipt Date: 20240314
  Transmission Date: 20240409
  Serious: No
  Sender: FDA-Public Use
  Company Number: US-ABBVIE-5678179

PATIENT
  Age: 75 Year
  Sex: Female

DRUGS (1)
  1. TAZORAC [Suspect]
     Active Substance: TAZAROTENE
     Indication: Product used for unknown indication
     Route: 061
     Dates: start: 202402, end: 2024

REACTIONS (2)
  - Rash erythematous [Unknown]
  - Rash macular [Unknown]

NARRATIVE: CASE EVENT DATE: 20240201
